FAERS Safety Report 4299416-6 (Version None)
Quarter: 2004Q1

REPORT INFORMATION
  Report Type: 
  Country: None (occurrence: None)
  Receive Date: 20040217
  Receipt Date: 20040203
  Transmission Date: 20041129
  Serious: Yes (Hospitalization)
  Sender: FDA-Public Use
  Company Number: 2004007003

PATIENT
  Sex: Female

DRUGS (2)
  1. ZELDOX [Suspect]
     Indication: SCHIZOPHRENIA
     Dosage: ORAL
     Route: 048
     Dates: start: 20030601
  2. CIPRAMIL (CITALOPRAM HYDROBROMIDE) [Concomitant]

REACTIONS (6)
  - ABNORMAL BEHAVIOUR [None]
  - HYPOMANIA [None]
  - IMPULSIVE BEHAVIOUR [None]
  - MANIA [None]
  - MOOD ALTERED [None]
  - SUICIDE ATTEMPT [None]
